FAERS Safety Report 8999027 (Version 1)
Quarter: 2013Q1

REPORT INFORMATION
  Report Type: Spontaneous
  Country: US (occurrence: US)
  Receive Date: 20130103
  Receipt Date: 20130103
  Transmission Date: 20140127
  Serious: No
  Sender: FDA-Public Use
  Company Number: US-009507513-1301USA000530

PATIENT
  Sex: Female
  Weight: 64.4 kg

DRUGS (2)
  1. VICTRELIS [Suspect]
     Indication: HEPATITIS C
     Dosage: UNK
     Dates: start: 20121121, end: 20130102
  2. PEGASYS [Suspect]

REACTIONS (1)
  - No therapeutic response [Unknown]
